FAERS Safety Report 4832827-6 (Version None)
Quarter: 2005Q4

REPORT INFORMATION
  Report Type: 
  Country: None (occurrence: None)
  Receive Date: 20051121
  Receipt Date: 20051111
  Transmission Date: 20060501
  Serious: Yes (Other)
  Sender: FDA-Public Use
  Company Number: PHBS2005ES16654

PATIENT
  Sex: Female

DRUGS (2)
  1. SYNTOCINON [Suspect]
     Indication: UTERINE ATONY
     Dosage: 2 AMP
  2. RINGER'S [Concomitant]

REACTIONS (1)
  - RESPIRATORY ARREST [None]
